FAERS Safety Report 4956276-5 (Version None)
Quarter: 2006Q1

REPORT INFORMATION
  Report Type: 
  Country: None (occurrence: None)
  Receive Date: 20060323
  Receipt Date: 20060310
  Transmission Date: 20060701
  Serious: Yes (Hospitalization)
  Sender: FDA-Public Use
  Company Number: 20060038

PATIENT
  Age: 36 Year
  Sex: Female

DRUGS (3)
  1. VENOFER [Suspect]
     Indication: IRON DEFICIENCY ANAEMIA
     Dosage: 100 MG IV (1 IN 1 A WEEK  INTRAVENOUS)
     Route: 042
     Dates: start: 20050601
  2. METHOTREXATE [Concomitant]
  3. LEDERFOLINE (FOLINATE DE CALCIUM) [Concomitant]

REACTIONS (4)
  - JOINT ANKYLOSIS [None]
  - MALAISE [None]
  - OEDEMA [None]
  - VERTIGO [None]
